FAERS Safety Report 7135509-3 (Version None)
Quarter: 2010Q4

REPORT INFORMATION
  Report Type: 
  Country: None (occurrence: None)
  Receive Date: 20101203
  Receipt Date: 20101122
  Transmission Date: 20110411
  Serious: Yes (Death, Hospitalization, Disabling)
  Sender: FDA-Public Use
  Company Number: US-ELI_LILLY_AND_COMPANY-US201005003141

PATIENT
  Sex: Male

DRUGS (3)
  1. FORTEO [Suspect]
     Indication: OSTEOPOROSIS
     Dosage: 20 UG, UNKNOWN
     Dates: start: 20100406
  2. ARICEPT [Concomitant]
     Dosage: 10 MG, DAILY (1/D)
  3. VITAMIN TAB [Concomitant]

REACTIONS (16)
  - ABDOMINAL DISTENSION [None]
  - ABDOMINAL INFECTION [None]
  - ASTHENIA [None]
  - CYSTITIS [None]
  - DECREASED APPETITE [None]
  - DIARRHOEA [None]
  - DYSURIA [None]
  - FAILURE TO THRIVE [None]
  - FLUID INTAKE REDUCED [None]
  - FUNGAL INFECTION [None]
  - GAIT DISTURBANCE [None]
  - INFECTION [None]
  - INJECTION SITE HAEMATOMA [None]
  - MEDICATION ERROR [None]
  - PARALYSIS [None]
  - PNEUMONIA [None]
